FAERS Safety Report 21965128 (Version 1)
Quarter: 2023Q1

REPORT INFORMATION
  Report Type: Report from Study
  Country: US (occurrence: US)
  Receive Date: 20230208
  Receipt Date: 20230208
  Transmission Date: 20230417
  Serious: Yes (Hospitalization)
  Sender: FDA-Public Use
  Company Number: US-BIOVITRUM-2022US15833

PATIENT
  Sex: Male

DRUGS (5)
  1. ORFADIN [Suspect]
     Active Substance: NITISINONE
     Indication: Tyrosinaemia
     Dates: start: 20140514
  2. ORFADIN [Suspect]
     Active Substance: NITISINONE
     Dates: start: 20140514
  3. PANTOPRAZOLE [Concomitant]
     Active Substance: PANTOPRAZOLE
  4. VITAMINS NOS [Concomitant]
     Active Substance: VITAMINS
  5. METOPROLOL [Concomitant]
     Active Substance: METOPROLOL

REACTIONS (2)
  - Tyrosinaemia [Unknown]
  - Eye disorder [Unknown]
